FAERS Safety Report 12958191 (Version 1)
Quarter: 2016Q4

REPORT INFORMATION
  Report Type: Spontaneous
  Country: US (occurrence: US)
  Receive Date: 20161120
  Receipt Date: 20161120
  Transmission Date: 20170207
  Serious: No
  Sender: FDA-Public Use
  Company Number: US-ASTRAZENECA-2016SF17814

PATIENT
  Sex: Female

DRUGS (18)
  1. TOPROL XL [Suspect]
     Active Substance: METOPROLOL SUCCINATE
     Route: 048
  2. CELEBREX [Suspect]
     Active Substance: CELECOXIB
     Route: 048
  3. NITROGIYDERIN [Concomitant]
     Dosage: 1 DAILY
  4. LESCOL LX [Concomitant]
  5. PRILOSEC [Suspect]
     Active Substance: OMEPRAZOLE MAGNESIUM
     Route: 048
  6. WARFARIN [Concomitant]
     Active Substance: WARFARIN
  7. MILK-0-MAG [Concomitant]
  8. LIPITOR [Suspect]
     Active Substance: ATORVASTATIN CALCIUM
     Route: 065
  9. NITRO TABS [Concomitant]
  10. BUMEX [Concomitant]
     Active Substance: BUMETANIDE
  11. KLOR- CONM1O [Concomitant]
  12. VITAMIN D [Concomitant]
     Active Substance: CHOLECALCIFEROL
     Dosage: 2000 I.C 1 DAILY
  13. EYE DROPS [Concomitant]
     Active Substance: TETRAHYDROZOLINE HYDROCHLORIDE
     Dosage: 15 ML 1 DROP
  14. CYANOCOBALAM [Concomitant]
     Dosage: 1000 MCG INJECTION ONCE A MONTH
  15. THYROID (ARMOUR) [Concomitant]
     Dosage: 90.0MG UNKNOWN
  16. ASPIRIN. [Concomitant]
     Active Substance: ASPIRIN
  17. ZETIA [Concomitant]
     Active Substance: EZETIMIBE
  18. PEPCID [Concomitant]
     Active Substance: FAMOTIDINE

REACTIONS (4)
  - Drug hypersensitivity [Unknown]
  - Arthralgia [None]
  - Myalgia [None]
  - Asthenia [None]
